FAERS Safety Report 9552887 (Version 1)
Quarter: 2013Q2

REPORT INFORMATION
  Report Type: Spontaneous
  Country: AU (occurrence: None)
  Receive Date: 20130517
  Receipt Date: 20130517
  Transmission Date: 20140414
  Serious: Yes (Hospitalization)
  Sender: FDA-Public Use
  Company Number: 2012PL000195

PATIENT
  Sex: Female
  Weight: 75 kg

DRUGS (5)
  1. AZATHIOPRINE [Suspect]
     Indication: COLITIS ULCERATIVE
     Route: 048
  2. REMICADE (INFLIXIMAB) [Suspect]
     Indication: COLITIS ULCERATIVE
     Route: 042
  3. METFORMIN [Concomitant]
  4. BISOPROLOL FUMARATE [Concomitant]
  5. PANTOPRAZOLE [Concomitant]

REACTIONS (1)
  - Vaginal cancer [None]
